FAERS Safety Report 18064649 (Version 2)
Quarter: 2021Q2

REPORT INFORMATION
  Report Type: Spontaneous
  Country: US (occurrence: US)
  Receive Date: 20200724
  Receipt Date: 20210629
  Transmission Date: 20210717
  Serious: Yes (Other)
  Sender: FDA-Public Use
  Company Number: US-GLAXOSMITHKLINE-US2020140716

PATIENT
  Sex: Female

DRUGS (6)
  1. ZANTAC [Suspect]
     Active Substance: RANITIDINE HYDROCHLORIDE
     Route: 065
  2. ZANTAC [Suspect]
     Active Substance: RANITIDINE HYDROCHLORIDE
     Indication: GASTRIC ULCER
     Dosage: 2.5ML OR 7.5ML TWICE A DAY
     Route: 065
     Dates: start: 201406, end: 201909
  3. ZANTAC [Suspect]
     Active Substance: RANITIDINE HYDROCHLORIDE
     Indication: GASTRIC ULCER
     Dosage: UNK, QD
     Route: 065
     Dates: start: 201406, end: 201909
  4. RANITIDINE. [Suspect]
     Active Substance: RANITIDINE
     Route: 065
  5. RANITIDINE. [Suspect]
     Active Substance: RANITIDINE
     Indication: GASTRIC ULCER
     Dosage: 2.5ML OR 7.5ML TWICE A DAY
     Route: 065
     Dates: start: 201406, end: 201909
  6. RANITIDINE. [Suspect]
     Active Substance: RANITIDINE
     Indication: GASTRIC ULCER
     Dosage: 2.5ML OR 7.5ML TWICE A DAY
     Route: 065
     Dates: start: 201406, end: 201909

REACTIONS (2)
  - Lung neoplasm malignant [Unknown]
  - Hepatic cancer [Unknown]
